FAERS Safety Report 6185123-1 (Version None)
Quarter: 2009Q2

REPORT INFORMATION
  Report Type: 
  Country: None (occurrence: None)
  Receive Date: 20090507
  Receipt Date: 20090430
  Transmission Date: 20091009
  Serious: Yes (Hospitalization)
  Sender: FDA-Public Use
  Company Number: ADR1472009 (BFARM REF NO.: DE-BFARM-09052398)

PATIENT
  Age: 79 Year
  Sex: Male

DRUGS (9)
  1. SIMVASTATIN [Suspect]
     Indication: HYPERLIPIDAEMIA
     Dosage: 40 MG/D ORAL
     Route: 048
     Dates: start: 20070901, end: 20090406
  2. AMOXI CLAVULAN AL 875/125 (AMOXICILLIN TRIHYDRATE / CLAVULANATE POTASS [Concomitant]
  3. VOTAREN DISPERS (DICLOFENAC SODIUM) [Concomitant]
  4. INSUMAN COMB 25/75 (ISOPHANE INSULIN/HUMAN INSULIN) [Concomitant]
  5. POTASSIUM CHLORIDE [Concomitant]
  6. EMBOLEX [Concomitant]
  7. OMEPRAZOLE [Concomitant]
  8. ZOLPIDEM TARTRATE [Concomitant]
  9. TORASEMIDE HEXAL (TORASEMIDE) [Concomitant]

REACTIONS (3)
  - DIARRHOEA [None]
  - DRUG INTERACTION [None]
  - HEPATIC ENZYME INCREASED [None]
